FAERS Safety Report 4543821-7 (Version None)
Quarter: 2004Q4

REPORT INFORMATION
  Report Type: 
  Country: None (occurrence: None)
  Receive Date: 20041229
  Receipt Date: 20041229
  Transmission Date: 20050328
  Serious: Yes (Hospitalization, Other)
  Sender: FDA-Public Use
  Company Number: None

PATIENT
  Sex: Male
  Weight: 73.4827 kg

DRUGS (4)
  1. COREG [Suspect]
     Dosage: 1/2 PILL TWICE A DAY
     Dates: start: 20040511, end: 20040523
  2. ZOCOR [Concomitant]
  3. OMEPRAZOLE [Concomitant]
  4. ASPIRIN [Concomitant]

REACTIONS (2)
  - ANXIETY [None]
  - NIGHTMARE [None]
